FAERS Safety Report 8537383-7 (Version None)
Quarter: 2012Q3

REPORT INFORMATION
  Report Type: 
  Country: None (occurrence: None)
  Receive Date: 20120725
  Receipt Date: 20120719
  Transmission Date: 20120928
  Serious: Yes (Other)
  Sender: FDA-Public Use
  Company Number: BR-ROCHE-1062305

PATIENT
  Age: 41 Year
  Sex: Male
  Weight: 99 kg

DRUGS (3)
  1. VEMURAFENIB [Suspect]
     Indication: MALIGNANT MELANOMA
     Dosage: PERMANENTLY DISCONTINUED
     Route: 048
     Dates: start: 20120323, end: 20120419
  2. NAPROXEN [Concomitant]
     Route: 065
     Dates: start: 20120416, end: 20120621
  3. TRAMADOL HYDROCHLORIDE [Concomitant]
     Route: 065
     Dates: start: 20120416, end: 20120416

REACTIONS (1)
  - PAIN [None]
